FAERS Safety Report 5934054-8 (Version None)
Quarter: 2008Q4

REPORT INFORMATION
  Report Type: 
  Country: None (occurrence: None)
  Receive Date: 20081024
  Receipt Date: 20081010
  Transmission Date: 20090506
  Serious: Yes (Hospitalization, Other)
  Sender: FDA-Public Use
  Company Number: 2008BI009471

PATIENT
  Age: 43 Year
  Sex: Female

DRUGS (11)
  1. TYSABRI [Suspect]
     Indication: MULTIPLE SCLEROSIS
     Dosage: 300 MG; QM; IV
     Route: 042
     Dates: start: 20061030, end: 20080407
  2. FLUOXETINE [Concomitant]
  3. HYDROCHLORIDE [Concomitant]
  4. GABITRIL [Concomitant]
  5. PROVIGIL [Concomitant]
  6. LYRICA [Concomitant]
  7. ROZEREM [Concomitant]
  8. BONIVA [Concomitant]
  9. DURAGESIC-100 [Concomitant]
  10. MORPHINE SULFATE [Concomitant]
  11. DIAZEPAM [Concomitant]

REACTIONS (2)
  - BREAST CANCER FEMALE [None]
  - PROCEDURAL HYPOTENSION [None]
